FAERS Safety Report 10204885 (Version 1)
Quarter: 2014Q2

REPORT INFORMATION
  Report Type: Spontaneous
  Country: US (occurrence: US)
  Receive Date: 20140529
  Receipt Date: 20140529
  Transmission Date: 20141212
  Serious: No
  Sender: FDA-Public Use
  Company Number: US-009507513-1405USA011252

PATIENT
  Age: 39 Year
  Sex: Female
  Weight: 80.73 kg

DRUGS (1)
  1. MIRALAX [Suspect]
     Indication: CONSTIPATION
     Dosage: 17 G, UNKNOWN
     Route: 048
     Dates: start: 20140512

REACTIONS (3)
  - Abdominal pain upper [Unknown]
  - Urticaria [Unknown]
  - Pruritus [Unknown]
